FAERS Safety Report 14591011 (Version 4)
Quarter: 2018Q2

REPORT INFORMATION
  Report Type: Report from Study
  Country: DE (occurrence: DE)
  Receive Date: 20180302
  Receipt Date: 20180424
  Transmission Date: 20180711
  Serious: Yes (Death, Hospitalization)
  Sender: FDA-Public Use
  Company Number: DE-JNJFOC-20180218646

PATIENT
  Age: 3 Decade
  Sex: Female
  Weight: 98 kg

DRUGS (3)
  1. NAPROXEN. [Concomitant]
     Active Substance: NAPROXEN
     Indication: AXIAL SPONDYLOARTHRITIS
  2. SIMPONI [Suspect]
     Active Substance: GOLIMUMAB
     Indication: AXIAL SPONDYLOARTHRITIS
     Route: 058
     Dates: start: 20161129, end: 20180201
  3. IBUPROFEN. [Concomitant]
     Active Substance: IBUPROFEN
     Indication: AXIAL SPONDYLOARTHRITIS
     Route: 065

REACTIONS (7)
  - Leukocytosis [Recovered/Resolved]
  - Nausea [Recovered/Resolved]
  - Asthma [Recovered/Resolved]
  - Acarodermatitis [Recovered/Resolved]
  - Vomiting [Recovered/Resolved]
  - Gastroenteritis [Recovered/Resolved]
  - Sepsis [Fatal]

NARRATIVE: CASE EVENT DATE: 20171207
